FAERS Safety Report 19210833 (Version 5)
Quarter: 2024Q3

REPORT INFORMATION
  Report Type: Report from Study
  Country: US (occurrence: US)
  Receive Date: 20210504
  Receipt Date: 20240906
  Transmission Date: 20241016
  Serious: Yes (Hospitalization)
  Sender: ENDO
  Company Number: US-ENDO PHARMACEUTICALS INC-2021-002703

PATIENT
  Sex: Male
  Weight: 119.5 kg

DRUGS (40)
  1. ROBAXIN [Suspect]
     Active Substance: METHOCARBAMOL
     Indication: Pain
     Dosage: UNK UNKNOWN, UNKNOWN
     Route: 048
     Dates: start: 20210322, end: 20210329
  2. ROBAXIN [Suspect]
     Active Substance: METHOCARBAMOL
     Indication: Impaired healing
  3. SODIUM CHLORIDE [Suspect]
     Active Substance: SODIUM CHLORIDE
     Indication: Fluid replacement
     Dosage: UNK UNKNOWN, UNKNOWN
     Route: 042
     Dates: start: 20210322, end: 20210329
  4. TORADOL [Suspect]
     Active Substance: KETOROLAC TROMETHAMINE
     Indication: Impaired healing
     Dosage: UNK UNKNOWN, UNKNOWN
     Route: 048
     Dates: start: 20210322, end: 20210329
  5. LENACAPAVIR [Suspect]
     Active Substance: LENACAPAVIR
     Indication: HIV infection
     Dosage: 600 MG, DAILY
     Route: 048
     Dates: start: 20200406, end: 20200406
  6. LENACAPAVIR [Suspect]
     Active Substance: LENACAPAVIR
     Dosage: 600 MG, DAILY
     Route: 048
     Dates: start: 20200407, end: 20200407
  7. LENACAPAVIR [Suspect]
     Active Substance: LENACAPAVIR
     Dosage: 300 MG DAILY
     Route: 048
     Dates: start: 20200413, end: 20200413
  8. LENACAPAVIR [Suspect]
     Active Substance: LENACAPAVIR
     Dosage: 300 MG DAILY
     Route: 048
     Dates: start: 20220425
  9. LENACAPAVIR [Suspect]
     Active Substance: LENACAPAVIR
     Dosage: 927 MILLIGRAM, DAILY
     Route: 058
     Dates: start: 20200420
  10. LENACAPAVIR [Suspect]
     Active Substance: LENACAPAVIR
     Dosage: 927 MILLIGRAM, DAILY
     Route: 058
     Dates: start: 20211018, end: 20211018
  11. LENACAPAVIR [Suspect]
     Active Substance: LENACAPAVIR
     Dosage: 927 MILLIGRAM, DAILY
     Route: 058
     Dates: start: 20201026
  12. LENACAPAVIR [Suspect]
     Active Substance: LENACAPAVIR
     Dosage: 927 MILLIGRAM, DAILY
     Route: 058
     Dates: start: 20210412
  13. LENACAPAVIR [Suspect]
     Active Substance: LENACAPAVIR
     Dosage: 300 MG DAILY
     Route: 048
     Dates: start: 20220425
  14. BIKTARVY [Concomitant]
     Active Substance: BICTEGRAVIR SODIUM\EMTRICITABINE\TENOFOVIR ALAFENAMIDE FUMARATE
     Indication: Product used for unknown indication
     Dosage: UNK UNKNOWN, UNKNOWN
     Route: 065
     Dates: start: 20180525
  15. TRAZODONE [Concomitant]
     Active Substance: TRAZODONE HYDROCHLORIDE
     Indication: Product used for unknown indication
     Dosage: UNK UNKNOWN, UNKNOWN
     Route: 065
     Dates: start: 20190318
  16. DIFLUCAN [Concomitant]
     Active Substance: FLUCONAZOLE
     Indication: Product used for unknown indication
     Dosage: UNK UNKNOWN, UNKNOWN
     Route: 065
     Dates: start: 20200911
  17. VALTREX [Concomitant]
     Active Substance: VALACYCLOVIR HYDROCHLORIDE
     Indication: Product used for unknown indication
     Dosage: UNK UNKNOWN, UNKNOWN
     Route: 065
     Dates: start: 201009
  18. LISINOPRIL [Concomitant]
     Active Substance: LISINOPRIL
     Indication: Product used for unknown indication
     Dosage: UNK UNKNOWN, UNKNOWN
     Route: 065
     Dates: start: 202101
  19. ACETAMINOPHEN\OXYCODONE HYDROCHLORIDE\OXYCODONE TEREPHTHALATE [Concomitant]
     Active Substance: ACETAMINOPHEN\OXYCODONE HYDROCHLORIDE\OXYCODONE TEREPHTHALATE
     Indication: Product used for unknown indication
     Dosage: UNK UNKNOWN, UNKNOWN
     Route: 065
     Dates: start: 202101, end: 20210802
  20. LYRICA [Concomitant]
     Active Substance: PREGABALIN
     Indication: Product used for unknown indication
     Dosage: UNK UNKNOWN, UNKNOWN
     Route: 065
     Dates: start: 202101, end: 20210719
  21. LOMOTIL [Concomitant]
     Active Substance: ATROPINE SULFATE\DIPHENOXYLATE HYDROCHLORIDE
     Indication: Product used for unknown indication
     Dosage: UNK UNKNOWN, UNKNOWN
     Route: 065
     Dates: start: 1999, end: 202104
  22. COREG [Concomitant]
     Active Substance: CARVEDILOL
     Indication: Product used for unknown indication
     Dosage: UNK UNKNOWN, UNKNOWN
     Route: 065
     Dates: start: 2011
  23. IBALIZUMAB [Concomitant]
     Active Substance: IBALIZUMAB
     Indication: Product used for unknown indication
     Dosage: UNK UNKNOWN, UNKNOWN
     Route: 065
     Dates: start: 201808
  24. FOSTEMSAVIR [Concomitant]
     Active Substance: FOSTEMSAVIR
     Indication: Product used for unknown indication
     Dosage: UNK UNKNOWN, UNKNOWN
     Route: 065
     Dates: start: 20201101
  25. DORAVIRINE [Concomitant]
     Active Substance: DORAVIRINE
     Indication: Product used for unknown indication
     Dosage: UNK UNKNOWN, UNKNOWN
     Route: 065
     Dates: start: 201812
  26. ASPIRIN [Concomitant]
     Active Substance: ASPIRIN
     Indication: Product used for unknown indication
     Dosage: UNK UNKNOWN, UNKNOWN
     Route: 065
     Dates: start: 20210322
  27. LOMOTIL                            /00384302/ [Concomitant]
     Indication: Product used for unknown indication
     Dosage: UNK UNKNOWN, UNKNOWN
     Route: 065
     Dates: start: 20201218, end: 20210329
  28. ACETAMINOPHEN [Concomitant]
     Active Substance: ACETAMINOPHEN
     Indication: Product used for unknown indication
     Dosage: UNK UNKNOWN, UNKNOWN
     Route: 065
     Dates: start: 20201218, end: 20210329
  29. FAT EMULSION NOS [Concomitant]
     Active Substance: EGG PHOSPHOLIPIDS\SAFFLOWER OIL\SOYBEAN OIL
     Indication: Product used for unknown indication
     Dosage: UNK UNKNOWN, UNKNOWN
     Route: 065
     Dates: start: 20210322, end: 20210329
  30. HYDRALAZINE [Concomitant]
     Active Substance: HYDRALAZINE HYDROCHLORIDE
     Indication: Product used for unknown indication
     Dosage: UNK UNKNOWN, UNKNOWN
     Route: 065
     Dates: start: 20210322, end: 20210329
  31. KETAMINE [Concomitant]
     Active Substance: KETAMINE
     Indication: Product used for unknown indication
     Dosage: UNK UNKNOWN, UNKNOWN
     Route: 065
     Dates: start: 20210322, end: 20210329
  32. LIDOCAINE 5% EXTRA [Concomitant]
     Indication: Product used for unknown indication
     Dosage: UNK UNKNOWN, UNKNOWN
     Route: 065
     Dates: start: 20210322, end: 20210329
  33. OXYCODONE [Concomitant]
     Active Substance: OXYCODONE
     Indication: Product used for unknown indication
     Dosage: UNK UNKNOWN, UNKNOWN
     Route: 065
     Dates: start: 20201218, end: 20210329
  34. ZOFRAN [Concomitant]
     Active Substance: ONDANSETRON HYDROCHLORIDE
     Indication: Product used for unknown indication
     Dosage: UNK UNKNOWN, UNKNOWN
     Route: 065
     Dates: start: 20201218, end: 20210322
  35. MAALOX                             /00082501/ [Concomitant]
     Indication: Product used for unknown indication
     Dosage: UNK UNKNOWN, UNKNOWN
     Route: 065
     Dates: start: 20210118, end: 20210222
  36. MIRALAX [Concomitant]
     Active Substance: POLYETHYLENE GLYCOL 3350
     Indication: Product used for unknown indication
     Dosage: UNK UNKNOWN, UNKNOWN
     Route: 065
     Dates: start: 20210118, end: 20210222
  37. MORPHINE [Concomitant]
     Active Substance: MORPHINE
     Indication: Product used for unknown indication
     Dosage: UNK UNKNOWN, UNKNOWN
     Route: 065
     Dates: start: 20210119, end: 20210420
  38. NORCO [Concomitant]
     Active Substance: ACETAMINOPHEN\HYDROCODONE BITARTRATE
     Indication: Product used for unknown indication
     Dosage: UNK UNKNOWN, UNKNOWN
     Route: 065
     Dates: start: 20201218, end: 20210222
  39. PROCHLORPERAZINE [Concomitant]
     Active Substance: PROCHLORPERAZINE
     Indication: Product used for unknown indication
     Dosage: UNK UNKNOWN, UNKNOWN
     Route: 065
     Dates: start: 20210322, end: 20210329
  40. LIDOCAINE [Concomitant]
     Active Substance: LIDOCAINE
     Indication: Product used for unknown indication
     Dosage: UNK UNKNOWN, UNKNOWN
     Route: 065
     Dates: start: 20210322, end: 20210329

REACTIONS (1)
  - Impaired healing [Recovered/Resolved]

NARRATIVE: CASE EVENT DATE: 20210322
